FAERS Safety Report 23692389 (Version 10)
Quarter: 2025Q4

REPORT INFORMATION
  Report Type: Report from Study
  Country: EU (occurrence: EU)
  Receive Date: 20240401
  Receipt Date: 20251120
  Transmission Date: 20260117
  Serious: Yes (Life-Threatening, Hospitalization, Other)
  Sender: PFIZER
  Company Number: EU-ABBVIE-5675362

PATIENT
  Age: 71 Year
  Sex: Male

DRUGS (25)
  1. XELJANZ [Suspect]
     Active Substance: TOFACITINIB CITRATE
     Dosage: 5 MILLIGRAM
     Route: 065
     Dates: start: 201801, end: 201803
  2. ENBREL [Suspect]
     Active Substance: ETANERCEPT
     Dosage: 50 MG
     Route: 065
     Dates: start: 201508, end: 201511
  3. METHOTREXATE SODIUM [Suspect]
     Active Substance: METHOTREXATE SODIUM
     Dosage: 20 MG
     Route: 065
  4. METHOTREXATE SODIUM [Suspect]
     Active Substance: METHOTREXATE SODIUM
     Dosage: 15 MG
     Route: 065
  5. METHOTREXATE SODIUM [Suspect]
     Active Substance: METHOTREXATE SODIUM
     Dosage: 20.0
     Route: 065
  6. METHOTREXATE SODIUM [Suspect]
     Active Substance: METHOTREXATE SODIUM
     Dosage: 20.0
     Route: 065
  7. METHOTREXATE SODIUM [Suspect]
     Active Substance: METHOTREXATE SODIUM
     Dosage: 20.0
     Route: 065
  8. METHOTREXATE SODIUM [Suspect]
     Active Substance: METHOTREXATE SODIUM
     Dosage: 20.0
     Route: 065
  9. RITUXIMAB [Suspect]
     Active Substance: RITUXIMAB
     Dosage: 5 MILLIGRAM
     Route: 065
     Dates: start: 201705, end: 201709
  10. RITUXIMAB [Suspect]
     Active Substance: RITUXIMAB
     Dosage: 2 UNK
     Route: 065
     Dates: start: 201609
  11. ADALIMUMAB [Suspect]
     Active Substance: ADALIMUMAB
     Dosage: 40 MILLIGRAM
     Route: 065
     Dates: start: 20230628, end: 20230901
  12. ADALIMUMAB [Suspect]
     Active Substance: ADALIMUMAB
     Dosage: 40 MILLIGRAM, Q2WK
     Route: 065
     Dates: start: 202409, end: 202409
  13. RITUXIMAB [Suspect]
     Active Substance: RITUXIMAB
     Dosage: UNK
     Route: 065
  14. ORENCIA [Suspect]
     Active Substance: ABATACEPT
     Dosage: 125 MG
     Route: 065
     Dates: start: 201505, end: 201508
  15. TOCILIZUMAB [Suspect]
     Active Substance: TOCILIZUMAB
     Dosage: 162 MG
     Route: 065
     Dates: start: 201511, end: 201601
  16. INFLIXIMAB [Suspect]
     Active Substance: INFLIXIMAB
     Dosage: 200 MILLIGRAM
     Route: 065
     Dates: start: 201602, end: 201607
  17. OLUMIANT [Suspect]
     Active Substance: BARICITINIB
     Dosage: 4 MILLIGRAM
     Route: 065
     Dates: start: 201805, end: 201810
  18. KEVZARA [Suspect]
     Active Substance: SARILUMAB
     Dosage: 200 MG
     Route: 065
     Dates: start: 202004, end: 202004
  19. RINVOQ [Suspect]
     Active Substance: UPADACITINIB
     Indication: Rheumatoid arthritis
     Dosage: 15 MG
     Route: 065
     Dates: start: 202005
  20. RINVOQ [Suspect]
     Active Substance: UPADACITINIB
     Dosage: 15 MG
     Route: 065
     Dates: start: 202210
  21. RINVOQ [Suspect]
     Active Substance: UPADACITINIB
     Dosage: 15 MG
     Route: 065
     Dates: start: 202211, end: 202306
  22. METOPROLOL [Suspect]
     Active Substance: METOPROLOL
     Dosage: 23.75 MILLIGRAM
  23. ROSUVASTATIN [Concomitant]
     Active Substance: ROSUVASTATIN
     Dosage: 20 MILLIGRAM
  24. PREDNISOLONE ACETATE [Concomitant]
     Active Substance: PREDNISOLONE ACETATE
     Dosage: 5 MILLIGRAM
  25. ASPIRIN [Concomitant]
     Active Substance: ASPIRIN
     Dosage: 15 MILLIGRAM

REACTIONS (10)
  - Myelodysplastic syndrome unclassifiable [Not Recovered/Not Resolved]
  - Myelodysplastic syndrome [Recovered/Resolved]
  - Myeloproliferative neoplasm [Unknown]
  - Anaemia [Unknown]
  - Pancytopenia [Unknown]
  - Fibrosis [Unknown]
  - Thrombocytopenia [Unknown]
  - Influenza like illness [Unknown]
  - Pruritus [Unknown]
  - Ecchymosis [Unknown]

NARRATIVE: CASE EVENT DATE: 20221201
